FAERS Safety Report 19496394 (Version 1)
Quarter: 2021Q3

REPORT INFORMATION
  Report Type: Report from Study
  Country: CA (occurrence: CA)
  Receive Date: 20210706
  Receipt Date: 20210706
  Transmission Date: 20211014
  Serious: Yes (Disabling, Other)
  Sender: FDA-Public Use
  Company Number: CA-SA-2020SA134941

PATIENT
  Age: 64 Year
  Sex: Female

DRUGS (18)
  1. VITAMIN B12 [Concomitant]
     Active Substance: CYANOCOBALAMIN
  2. APPLE CIDER VINEGAR [Concomitant]
     Active Substance: APPLE CIDER VINEGAR
  3. VITAMIN D [VITAMIN D NOS] [Concomitant]
     Active Substance: VITAMIN D NOS
  4. CLONAZEPAM. [Concomitant]
     Active Substance: CLONAZEPAM
  5. VITAMIN E NOS [Concomitant]
     Active Substance: .ALPHA.-TOCOPHEROL
  6. TERIFLUNOMIDE. [Suspect]
     Active Substance: TERIFLUNOMIDE
     Indication: RELAPSING-REMITTING MULTIPLE SCLEROSIS
     Dosage: 14 MG, QD
     Route: 048
     Dates: start: 20180511
  7. TEGRETOL [Concomitant]
     Active Substance: CARBAMAZEPINE
  8. SYNTHROID [Concomitant]
     Active Substance: LEVOTHYROXINE SODIUM
  9. FOLIC ACID. [Concomitant]
     Active Substance: FOLIC ACID
  10. DOCUSATE [Concomitant]
     Active Substance: DOCUSATE
  11. CYMBALTA [Concomitant]
     Active Substance: DULOXETINE HYDROCHLORIDE
  12. SENOKOT [Concomitant]
     Active Substance: SENNOSIDES
  13. ATIVAN [Concomitant]
     Active Substance: LORAZEPAM
  14. MAGNESIUM [Concomitant]
     Active Substance: MAGNESIUM
  15. CYCLOSPORIN [Concomitant]
     Active Substance: CYCLOSPORINE
  16. OREGANO LEAF OIL. [Concomitant]
     Active Substance: OREGANO LEAF OIL
  17. MULTIVITAMINS [VITAMINS NOS] [Concomitant]
     Active Substance: VITAMINS
  18. PAROXETINE. [Concomitant]
     Active Substance: PAROXETINE

REACTIONS (9)
  - Biliary colic [Not Recovered/Not Resolved]
  - Sjogren^s syndrome [Unknown]
  - Bedridden [Recovered/Resolved]
  - Rheumatoid nodule [Not Recovered/Not Resolved]
  - Rheumatoid arthritis [Not Recovered/Not Resolved]
  - Sciatica [Recovered/Resolved]
  - Inflammation [Recovered/Resolved]
  - Gallbladder disorder [Not Recovered/Not Resolved]
  - Muscle strain [Recovered/Resolved]

NARRATIVE: CASE EVENT DATE: 202005
